FAERS Safety Report 5086554-3 (Version None)
Quarter: 2006Q3

REPORT INFORMATION
  Report Type: 
  Country: None (occurrence: None)
  Receive Date: 20060823
  Receipt Date: 20060821
  Transmission Date: 20061208
  Serious: Yes (Other)
  Sender: FDA-Public Use
  Company Number: US-GLAXOSMITHKLINE-A0617406A

PATIENT
  Age: 56 Year
  Sex: Female

DRUGS (2)
  1. CITRUCEL CHOCOLATE FIBERSHAKE [Suspect]
     Indication: GASTROINTESTINAL DISORDER
     Dates: start: 20060816, end: 20060816
  2. NO CONCURRENT MEDICATION [Concomitant]

REACTIONS (3)
  - CONSTIPATION [None]
  - DYSURIA [None]
  - RECTAL HAEMORRHAGE [None]
